FAERS Safety Report 10960225 (Version 2)
Quarter: 2015Q2

REPORT INFORMATION
  Report Type: Report from Study
  Country: TR (occurrence: TR)
  Receive Date: 20150327
  Receipt Date: 20150429
  Transmission Date: 20150821
  Serious: Yes (Hospitalization)
  Sender: FDA-Public Use
  Company Number: TR-BAYER-2015-053040

PATIENT
  Age: 39 Year
  Sex: Female

DRUGS (1)
  1. BETAFERON [Suspect]
     Active Substance: INTERFERON BETA-1B
     Indication: MULTIPLE SCLEROSIS
     Dosage: UNK
     Route: 058
     Dates: start: 20120220

REACTIONS (4)
  - Tongue disorder [None]
  - Unevaluable event [Recovered/Resolved]
  - Dyspnoea [None]
  - Amnesia [Recovered/Resolved]

NARRATIVE: CASE EVENT DATE: 20150313
